FAERS Safety Report 20774619 (Version 1)
Quarter: 2022Q2

REPORT INFORMATION
  Report Type: Spontaneous
  Country: US (occurrence: US)
  Receive Date: 20220502
  Receipt Date: 20220502
  Transmission Date: 20220721
  Serious: No
  Sender: FDA-Public Use
  Company Number: US-ABBVIE-22K-163-4276540-00

PATIENT
  Sex: Female
  Weight: 46.308 kg

DRUGS (1)
  1. CREON [Suspect]
     Active Substance: PANCRELIPASE AMYLASE\PANCRELIPASE LIPASE\PANCRELIPASE PROTEASE
     Indication: Product used for unknown indication
     Route: 048

REACTIONS (11)
  - Insomnia [Unknown]
  - Abdominal distension [Unknown]
  - Nausea [Unknown]
  - Malnutrition [Unknown]
  - Diarrhoea [Unknown]
  - Diarrhoea [Unknown]
  - Weight decreased [Unknown]
  - Feeding disorder [Unknown]
  - Irritable bowel syndrome [Unknown]
  - Abdominal pain upper [Unknown]
  - Flatulence [Unknown]
